FAERS Safety Report 5351236-7 (Version None)
Quarter: 2007Q2

REPORT INFORMATION
  Report Type: 
  Country: None (occurrence: None)
  Receive Date: 20070608
  Receipt Date: 20070529
  Transmission Date: 20071010
  Serious: Yes (Hospitalization, Other)
  Sender: FDA-Public Use
  Company Number: US-PFIZER INC-2007044101

PATIENT
  Sex: Male
  Weight: 75 kg

DRUGS (8)
  1. TIKOSYN [Suspect]
     Indication: ATRIAL FIBRILLATION
  2. COREG [Concomitant]
  3. LASIX [Concomitant]
  4. ANTIHYPERTENSIVES [Concomitant]
  5. TYLENOL [Concomitant]
  6. NEXIUM [Concomitant]
  7. INSULIN [Concomitant]
  8. DRUG, UNSPECIFIED [Concomitant]

REACTIONS (10)
  - ASTHENIA [None]
  - CONFUSIONAL STATE [None]
  - CONTUSION [None]
  - DIZZINESS [None]
  - DYSPNOEA [None]
  - FALL [None]
  - GENERALISED OEDEMA [None]
  - HEART RATE IRREGULAR [None]
  - RENAL FAILURE [None]
  - TINEA PEDIS [None]
